FAERS Safety Report 8004609-8 (Version None)
Quarter: 2011Q4

REPORT INFORMATION
  Report Type: 
  Country: None (occurrence: None)
  Receive Date: 20111223
  Receipt Date: 20111215
  Transmission Date: 20120403
  Serious: Yes (Hospitalization)
  Sender: FDA-Public Use
  Company Number: US-AMGEN-USASP2011067200

PATIENT
  Sex: Female

DRUGS (2)
  1. PREDNISONE TAB [Concomitant]
     Indication: BONE MARROW TRANSPLANT
  2. PROLIA [Suspect]
     Indication: OSTEOPOROSIS POSTMENOPAUSAL
     Dosage: 60 MG, Q6MO
     Dates: start: 20111129

REACTIONS (6)
  - HYPOPHOSPHATAEMIA [None]
  - UROSEPSIS [None]
  - PLATELET COUNT DECREASED [None]
  - HYPOCALCAEMIA [None]
  - BLOOD ALBUMIN DECREASED [None]
  - PNEUMONIA [None]
